FAERS Safety Report 5362032-9 (Version None)
Quarter: 2007Q2

REPORT INFORMATION
  Report Type: 
  Country: None (occurrence: None)
  Receive Date: 20070619
  Receipt Date: 20070614
  Transmission Date: 20071010
  Serious: Yes (Congenital Anomaly, Other)
  Sender: FDA-Public Use
  Company Number: US-RB-005872-07

PATIENT
  Sex: Female

DRUGS (4)
  1. SUBOXONE [Suspect]
     Route: 060
     Dates: start: 20030801, end: 20060701
  2. SUBOXONE [Suspect]
     Route: 060
     Dates: start: 20060701, end: 20070301
  3. SUBOXONE [Suspect]
     Route: 060
     Dates: start: 20070301
  4. LEXAPRO [Concomitant]
     Indication: DEPRESSION
     Dosage: DOSAGE UNKNOWN
     Route: 048

REACTIONS (5)
  - AMNIOTIC FLUID VOLUME INCREASED [None]
  - DRUG DEPENDENCE [None]
  - DRUG EXPOSURE DURING PREGNANCY [None]
  - OEDEMA PERIPHERAL [None]
  - ULTRASOUND ANTENATAL SCREEN ABNORMAL [None]
